FAERS Safety Report 5199038-9 (Version None)
Quarter: 2007Q1

REPORT INFORMATION
  Report Type: 
  Country: None (occurrence: None)
  Receive Date: 20070104
  Receipt Date: 20061228
  Transmission Date: 20070707
  Serious: Yes (Death, Hospitalization)
  Sender: FDA-Public Use
  Company Number: JP-BRISTOL-MYERS SQUIBB COMPANY-13627435

PATIENT
  Age: 73 Year
  Sex: Male

DRUGS (6)
  1. CISPLATIN [Suspect]
     Indication: PLEURAL MESOTHELIOMA MALIGNANT
     Route: 042
     Dates: start: 20061120, end: 20061120
  2. PEMETREXED DISODIUM [Suspect]
     Indication: PLEURAL MESOTHELIOMA MALIGNANT
     Route: 042
     Dates: start: 20061120, end: 20061120
  3. VITAMIN B-12 [Concomitant]
  4. FOLIC ACID [Concomitant]
  5. HYDROXOCOBALAMIN [Concomitant]
     Dates: start: 20060101
  6. VITAMINS NOS [Concomitant]
     Dates: start: 20060101

REACTIONS (3)
  - PNEUMONIA [None]
  - PNEUMONIA ASPIRATION [None]
  - RESPIRATORY FAILURE [None]
